FAERS Safety Report 8441778-X (Version None)
Quarter: 2012Q2

REPORT INFORMATION
  Report Type: 
  Country: None (occurrence: None)
  Receive Date: 20120615
  Receipt Date: 20120329
  Transmission Date: 20120825
  Serious: No
  Sender: FDA-Public Use
  Company Number: US-NOVEN-12US004396

PATIENT

DRUGS (1)
  1. DAYTRANA [Suspect]
     Indication: ATTENTION DEFICIT/HYPERACTIVITY DISORDER
     Dosage: 10 MG, QD
     Route: 062
     Dates: start: 20120325, end: 20120328

REACTIONS (4)
  - PRURITUS GENERALISED [None]
  - APPLICATION SITE ERYTHEMA [None]
  - HYPERSENSITIVITY [None]
  - URTICARIA [None]
